FAERS Safety Report 18327989 (Version 2)
Quarter: 2025Q2

REPORT INFORMATION
  Report Type: Report from Study
  Country: FR (occurrence: FR)
  Receive Date: 20200930
  Receipt Date: 20250621
  Transmission Date: 20250717
  Serious: Yes (Other)
  Sender: AUROBINDO
  Company Number: FR-SUN PHARMACEUTICAL INDUSTRIES LTD-2020RR-260953

PATIENT
  Age: 83 Year
  Sex: Male

DRUGS (3)
  1. IMATINIB [Suspect]
     Active Substance: IMATINIB
     Indication: Chronic myeloid leukaemia
     Dosage: 400 MILLIGRAM, ONCE A DAY (400 MILLIGRAM, DAILY AS FIRST LINE THERAPY)
     Route: 065
  2. NILOTINIB [Suspect]
     Active Substance: NILOTINIB
     Indication: Chronic myeloid leukaemia
     Dosage: 300 MILLIGRAM, TWO TIMES A DAY (300 MG X 2/DAY SECOND LINE)
     Route: 065
  3. BOSUTINIB [Suspect]
     Active Substance: BOSUTINIB
     Indication: Product used for unknown indication
     Dosage: 300 MILLIGRAM, ONCE A DAY
     Route: 065

REACTIONS (1)
  - Disease progression [Unknown]
